FAERS Safety Report 7701099-7 (Version None)
Quarter: 2011Q3

REPORT INFORMATION
  Report Type: 
  Country: None (occurrence: None)
  Receive Date: 20110822
  Receipt Date: 20110819
  Transmission Date: 20111222
  Serious: Yes (Other)
  Sender: FDA-Public Use
  Company Number: US-PFIZER INC-2011181568

PATIENT
  Sex: Female
  Weight: 52.61 kg

DRUGS (6)
  1. ZOLOFT [Suspect]
     Dosage: 50 MG, DAILY
     Dates: start: 20110807, end: 20110801
  2. ZOLOFT [Suspect]
     Dosage: 200 MG, DAILY
     Route: 048
     Dates: start: 20110101, end: 20110101
  3. ZOLOFT [Suspect]
     Indication: BIPOLAR DISORDER
     Dosage: 50 MG, DAILY
     Route: 048
     Dates: start: 20110101, end: 20110101
  4. ZOLOFT [Suspect]
     Indication: DEPRESSION
     Dosage: 25 MG, DAILY
     Route: 048
     Dates: start: 20110501, end: 20110101
  5. ZOLOFT [Suspect]
     Dosage: 100 MG, DAILY
     Route: 048
     Dates: start: 20110101, end: 20110101
  6. ZOLOFT [Suspect]
     Dosage: 100 MG, DAILY
     Dates: start: 20110801, end: 20110801

REACTIONS (2)
  - ANXIETY [None]
  - MANIA [None]
